FAERS Safety Report 7750993-X (Version None)
Quarter: 2011Q3

REPORT INFORMATION
  Report Type: 
  Country: None (occurrence: None)
  Receive Date: 20110914
  Receipt Date: 20110905
  Transmission Date: 20111222
  Serious: Yes (Life-Threatening, Hospitalization, Other)
  Sender: FDA-Public Use
  Company Number: PHHO2011FR02230

PATIENT
  Sex: Female
  Weight: 40 kg

DRUGS (6)
  1. MORPHINE [Concomitant]
     Dosage: 10 UNK, UNK
     Route: 042
  2. DEXAMETHASONE [Suspect]
     Dosage: UNK
     Route: 048
     Dates: start: 20110118
  3. CYCLOPHOSPHAMIDE [Suspect]
     Indication: ACUTE LYMPHOCYTIC LEUKAEMIA
     Dosage: UNK
     Dates: start: 20110120
  4. IMATINIB MESYLATE [Suspect]
     Indication: ACUTE LYMPHOCYTIC LEUKAEMIA
     Dosage: UNK
     Route: 048
     Dates: start: 20110118, end: 20110131
  5. PRIMPERAN TAB [Concomitant]
     Dosage: 40 MG, UNK
     Route: 042
  6. CEFTAZIDIME SODIUM [Concomitant]
     Dosage: 6 G, UNK
     Route: 042

REACTIONS (14)
  - INTESTINAL PERFORATION [None]
  - SEPTIC SHOCK [None]
  - PLEURAL EFFUSION [None]
  - ILEUS [None]
  - ABDOMINAL DISTENSION [None]
  - GASTROINTESTINAL NECROSIS [None]
  - HEPATIC NEOPLASM [None]
  - ASCITES [None]
  - HAEMATOCHEZIA [None]
  - ATELECTASIS [None]
  - INFECTIOUS PERITONITIS [None]
  - COLITIS ULCERATIVE [None]
  - BONE MARROW FAILURE [None]
  - HYPOTENSION [None]
